FAERS Safety Report 18070331 (Version 2)
Quarter: 2020Q3

REPORT INFORMATION
  Report Type: Report from Study
  Country: DE (occurrence: DE)
  Receive Date: 20200727
  Receipt Date: 20200831
  Transmission Date: 20201103
  Serious: Yes (Death, Hospitalization, Other)
  Sender: FDA-Public Use
  Company Number: DE-BRISTOL-MYERS SQUIBB COMPANY-BMS-2020-038996

PATIENT
  Age: 36 Year
  Sex: Male
  Weight: 69 kg

DRUGS (7)
  1. IPILIMUMAB [Suspect]
     Active Substance: IPILIMUMAB
     Dosage: 216 MILLIGRAM, Q3WK
     Route: 065
     Dates: start: 20190820, end: 20190910
  2. NIVOLUMAB [Suspect]
     Active Substance: NIVOLUMAB
     Dosage: 72 MILLIGRAM, Q3WK
     Route: 042
     Dates: start: 20190820, end: 20190910
  3. NIVOLUMAB [Suspect]
     Active Substance: NIVOLUMAB
     Dosage: 480 MILLIGRAM, Q4WK
     Route: 042
     Dates: start: 20191022, end: 20200407
  4. NIVOLUMAB [Suspect]
     Active Substance: NIVOLUMAB
     Indication: MALIGNANT MELANOMA
     Dosage: 75 MILLIGRAM, Q3WK
     Route: 042
     Dates: start: 20190710, end: 20190731
  5. IPILIMUMAB [Suspect]
     Active Substance: IPILIMUMAB
     Indication: MALIGNANT MELANOMA
     Dosage: 225 MILLIGRAM, Q3WK
     Route: 065
     Dates: start: 20190710, end: 20190731
  6. ONDANSETRON [Concomitant]
     Active Substance: ONDANSETRON
     Indication: PRODUCT USED FOR UNKNOWN INDICATION
     Dosage: UNK
     Route: 065
  7. ALIZAPRIDE HYDROCHLORIDE [Concomitant]
     Active Substance: ALIZAPRIDE HYDROCHLORIDE
     Indication: PRODUCT USED FOR UNKNOWN INDICATION
     Route: 065

REACTIONS (11)
  - Decreased appetite [Unknown]
  - Intentional product use issue [Unknown]
  - Vomiting [Recovering/Resolving]
  - Muscle atrophy [Unknown]
  - Hair colour changes [Not Recovered/Not Resolved]
  - Malignant neoplasm progression [Fatal]
  - Weight decreased [Unknown]
  - Dizziness [Fatal]
  - Fatigue [Fatal]
  - Metastases to central nervous system [Unknown]
  - Cancer pain [Recovered/Resolved]

NARRATIVE: CASE EVENT DATE: 20190808
